FAERS Safety Report 9051082 (Version 2)
Quarter: 2013Q2

REPORT INFORMATION
  Report Type: Spontaneous
  Country: FR (occurrence: FR)
  Receive Date: 20130206
  Receipt Date: 20130411
  Transmission Date: 20140414
  Serious: Yes (Hospitalization)
  Sender: FDA-Public Use
  Company Number: FR-PFIZER INC-2013043991

PATIENT
  Age: 76 Year
  Sex: Male
  Weight: 65 kg

DRUGS (9)
  1. OXALIPLATIN [Suspect]
  2. RALTITREXED [Suspect]
  3. LEXOMIL [Concomitant]
     Dosage: 12 MG, UNK
     Route: 048
  4. YOHIMBINE ^HOUDE^ [Concomitant]
     Dosage: 2 MG, UNK
     Route: 048
  5. PLAVIX [Concomitant]
  6. IKOREL [Concomitant]
  7. NATISPRAY [Concomitant]
  8. TEMERIT [Concomitant]
  9. LERCAN [Concomitant]

REACTIONS (3)
  - Chest pain [Unknown]
  - Arrhythmia [Unknown]
  - Atrial fibrillation [Unknown]
